FAERS Safety Report 5195641-0 (Version None)
Quarter: 2006Q4

REPORT INFORMATION
  Report Type: 
  Country: None (occurrence: None)
  Receive Date: 20061222
  Receipt Date: 20061222
  Transmission Date: 20070319
  Serious: Yes (Hospitalization)
  Sender: FDA-Public Use
  Company Number: None

PATIENT
  Sex: Male
  Weight: 164.2 kg

DRUGS (1)
  1. AVASTIN [Suspect]
     Indication: LEIOMYOSARCOMA
     Dosage: 305 MG DAY 1, DAY 15 IV
     Route: 042
     Dates: start: 20061013, end: 20061129

REACTIONS (1)
  - COMPUTERISED TOMOGRAM ABNORMAL [None]
